FAERS Safety Report 24392962 (Version 1)
Quarter: 2024Q4

REPORT INFORMATION
  Report Type: Spontaneous
  Country: US (occurrence: JP)
  Receive Date: 20241003
  Receipt Date: 20241003
  Transmission Date: 20250115
  Serious: Yes (Other)
  Sender: EISAI
  Company Number: US-Eisai-EC-2024-175255

PATIENT
  Sex: Female

DRUGS (3)
  1. LENVATINIB [Suspect]
     Active Substance: LENVATINIB
     Indication: Endometrial cancer
     Route: 048
  2. LENVATINIB [Suspect]
     Active Substance: LENVATINIB
     Route: 048
  3. KEYTRUDA [Suspect]
     Active Substance: PEMBROLIZUMAB
     Indication: Endometrial cancer
     Dosage: DOSE AND FREQUENCY WERE UNKNOWN
     Route: 042

REACTIONS (3)
  - Malignant neoplasm progression [Unknown]
  - Tumour necrosis [Unknown]
  - Product use issue [Unknown]
